FAERS Safety Report 9614397 (Version 1)
Quarter: 2013Q4

REPORT INFORMATION
  Report Type: Spontaneous
  Country: US (occurrence: None)
  Receive Date: 20131008
  Receipt Date: 20131008
  Transmission Date: 20140711
  Serious: Yes (Hospitalization)
  Sender: FDA-Public Use
  Company Number: None

PATIENT
  Age: 57 Year
  Sex: Male
  Weight: 90.72 kg

DRUGS (3)
  1. DECITABINE [Suspect]
     Indication: ACUTE MYELOID LEUKAEMIA
     Dosage: 20MG/M2; QDX10;  28 DAYCYC
     Dates: start: 20130712
  2. VANCOMYCIN [Concomitant]
  3. CEFEPIME [Concomitant]

REACTIONS (6)
  - Feeling abnormal [None]
  - Febrile neutropenia [None]
  - Tenderness [None]
  - Medical device complication [None]
  - Sepsis [None]
  - Device related infection [None]
